FAERS Safety Report 7222990-4 (Version None)
Quarter: 2011Q1

REPORT INFORMATION
  Report Type: 
  Country: None (occurrence: None)
  Receive Date: 20110112
  Receipt Date: 20110105
  Transmission Date: 20110831
  Serious: Yes (Hospitalization)
  Sender: FDA-Public Use
  Company Number: US-AMGEN-USASP2011000676

PATIENT

DRUGS (4)
  1. CYCLOPHOSPHAMIDE [Concomitant]
  2. ADRIAMYCIN PFS [Concomitant]
  3. NEULASTA [Suspect]
     Indication: NEUTROPENIA
  4. TAXOTERE [Concomitant]

REACTIONS (1)
  - SHOCK [None]
